FAERS Safety Report 21447513 (Version 1)
Quarter: 2022Q4

REPORT INFORMATION
  Report Type: Spontaneous
  Country: NL (occurrence: NL)
  Receive Date: 20221012
  Receipt Date: 20221012
  Transmission Date: 20230112
  Serious: Yes (Hospitalization)
  Sender: FDA-Public Use
  Company Number: None

PATIENT
  Sex: Female
  Weight: 96 kg

DRUGS (4)
  1. AZITHROMYCIN [Suspect]
     Active Substance: AZITHROMYCIN
     Indication: Oropharyngeal pain
     Dosage: 500 MILLIGRAM DAILY; 2 X A DAY 1, STRENGTH 250 MG,BRAND NAME NOT SPECIFIED
     Route: 065
     Dates: start: 20220820, end: 20220827
  2. FLUCONAZOLE [Suspect]
     Active Substance: FLUCONAZOLE
     Indication: Fungal infection
     Dosage: 100 MILLIGRAM DAILY; 1 X PER DAY 2, STRENGTH : 50MG / BRAND NAME NOT SPECIFIED, THERAPY END DATE : A
     Route: 065
     Dates: start: 20220822
  3. CLOZAPINE [Suspect]
     Active Substance: CLOZAPINE
     Indication: Psychotic disorder
     Dosage: 1.5 DOSAGE FORMS DAILY; 1X A DAY 1.5 PIECE, MELTING TABLET 100MG / BRAND NAME NOT SPECIFIED,
     Dates: start: 20080101, end: 20220831
  4. METAMIZOL [Suspect]
     Active Substance: METAMIZOLE SODIUM
     Indication: Pain
     Dosage: 4000 MILLIGRAM DAILY; 4X A DAY 2 , STRENGTH :  500MG / BRAND NAME NOT SPECIFIED,
     Route: 065
     Dates: start: 20220617, end: 20220831

REACTIONS (1)
  - Agranulocytosis [Recovered/Resolved]
